FAERS Safety Report 6703874-4 (Version None)
Quarter: 2010Q2

REPORT INFORMATION
  Report Type: 
  Country: None (occurrence: None)
  Receive Date: 20100430
  Receipt Date: 20100426
  Transmission Date: 20101027
  Serious: Yes (Death, Hospitalization)
  Sender: FDA-Public Use
  Company Number: DE-CELGENEUS-062-21880-10032248

PATIENT
  Age: 74 Year
  Sex: Female
  Weight: 72 kg

DRUGS (13)
  1. REVLIMID [Suspect]
     Indication: MULTIPLE MYELOMA
     Route: 048
     Dates: start: 20100120, end: 20100322
  2. DEXAMETHASONE [Suspect]
     Indication: MULTIPLE MYELOMA
     Route: 048
     Dates: start: 20100120, end: 20100301
  3. PAMIDRONIC ACID [Concomitant]
     Indication: MULTIPLE MYELOMA
     Route: 051
     Dates: start: 20070112, end: 20100305
  4. CLEXANE [Concomitant]
     Route: 058
     Dates: start: 20070501, end: 20100322
  5. RAMIPRIL [Concomitant]
     Indication: HYPERTENSION
     Route: 048
     Dates: start: 20100201, end: 20100323
  6. BISOPROLOL FUMARATE [Concomitant]
     Indication: HYPERTENSION
     Route: 048
     Dates: start: 20100201, end: 20100323
  7. ACETYLSALICYLIC ACID [Concomitant]
     Indication: DRUG USE FOR UNKNOWN INDICATION
     Route: 048
     Dates: start: 20100201, end: 20100323
  8. TORSEMIDE [Concomitant]
     Route: 048
     Dates: end: 20100323
  9. CALCIUM EFFERVESCENT TABLET [Concomitant]
     Route: 048
     Dates: end: 20100323
  10. CARBAPENTIN [Concomitant]
     Dates: start: 20100201, end: 20100323
  11. DIPYRONE TAB [Concomitant]
     Indication: PAIN
     Route: 048
     Dates: start: 20100201, end: 20100323
  12. LEVOTHYROXINE SODIUM [Concomitant]
     Indication: HYPOTHYROIDISM
     Route: 048
     Dates: end: 20100323
  13. PANTOZOL [Concomitant]
     Route: 048
     Dates: start: 20100201, end: 20100323

REACTIONS (1)
  - PULMONARY EMBOLISM [None]
